FAERS Safety Report 13531712 (Version 1)
Quarter: 2017Q2

REPORT INFORMATION
  Report Type: Spontaneous
  Country: US (occurrence: US)
  Receive Date: 20170510
  Receipt Date: 20170510
  Transmission Date: 20170830
  Serious: Yes (Hospitalization)
  Sender: FDA-Public Use
  Company Number: US-B.I. PHARMACEUTICALS,INC./RIDGEFIELD-2017-BI-025831

PATIENT
  Age: 59 Year
  Sex: Female

DRUGS (4)
  1. LASIX [Concomitant]
     Active Substance: FUROSEMIDE
     Indication: OEDEMA
     Dosage: 2 TIMES PER DAY;  FORM STRENGTH: 40 MG; FORMULATION: TABLET
     Route: 048
     Dates: start: 2016
  2. SPIRONOLACTONE. [Concomitant]
     Active Substance: SPIRONOLACTONE
     Indication: OEDEMA
     Dosage: 2 TIMES PER DAY;  FORM STRENGTH: 50 MG; FORMULATION: TABLET
     Route: 048
     Dates: start: 2016
  3. ADVAIR HFA [Concomitant]
     Active Substance: FLUTICASONE PROPIONATE\SALMETEROL XINAFOATE
     Indication: CHRONIC OBSTRUCTIVE PULMONARY DISEASE
     Dosage: 2 TIMES PER DAY;  FORM STRENGTH: 250/50 MCG; FORMULATION: INHALATION AEROSOL
     Route: 055
     Dates: start: 2016
  4. COMBIVENT [Suspect]
     Active Substance: ALBUTEROL SULFATE\IPRATROPIUM BROMIDE
     Indication: CHRONIC OBSTRUCTIVE PULMONARY DISEASE
     Dosage: 1 INHALATION 4 TIMES PER DAY;  FORM STRENGTH: 20 MCG / 100 MCG; FORMULATION: INHALATION SPRAY? ADMIN
     Route: 055
     Dates: start: 2016

REACTIONS (1)
  - Renal failure [Recovered/Resolved]

NARRATIVE: CASE EVENT DATE: 20170403
